FAERS Safety Report 7283115-2 (Version None)
Quarter: 2011Q1

REPORT INFORMATION
  Report Type: 
  Country: None (occurrence: None)
  Receive Date: 20110209
  Receipt Date: 20100722
  Transmission Date: 20110831
  Serious: No
  Sender: FDA-Public Use
  Company Number: A0871893A

PATIENT
  Age: 48 Year
  Sex: Male

DRUGS (6)
  1. INSULIN [Concomitant]
  2. GLUCOVANCE [Concomitant]
  3. TRICOR [Concomitant]
  4. LOVAZA [Concomitant]
  5. PAXIL CR [Suspect]
     Indication: POST-TRAUMATIC STRESS DISORDER
     Dosage: 37.5TAB PER DAY
     Route: 048
     Dates: start: 20090701
  6. LIPITOR [Concomitant]

REACTIONS (3)
  - FLASHBACK [None]
  - DRUG INEFFECTIVE [None]
  - ANXIETY [None]
